FAERS Safety Report 7315260 (Version 2)
Quarter: 2012Q4

REPORT INFORMATION
  Report Type: Spontaneous
  Country: ES (occurrence: None)
  Receive Date: 20100217
  Receipt Date: 20120911
  Transmission Date: 20130627
  Serious: Yes (Hospitalization)
  Sender: FDA-Public Use
  Company Number: 008714

PATIENT
  Age: 82 Year
  Sex: Male

DRUGS (3)
  1. CILOSTAZOL [Suspect]
     Indication: INTERMITTENT CLAUDICATION
     Route: 048
     Dates: start: 200912, end: 201001
  2. OMEPRAZOLE [Concomitant]
  3. TELMISARTAN [Concomitant]

REACTIONS (2)
  - Cardiogenic shock [None]
  - Acute myocardial infarction [None]
